FAERS Safety Report 6509408-1 (Version None)
Quarter: 2009Q4

REPORT INFORMATION
  Report Type: 
  Country: None (occurrence: None)
  Receive Date: 20091210
  Receipt Date: 20090929
  Transmission Date: 20100525
  Serious: Yes (Other)
  Sender: FDA-Public Use
  Company Number: CIP08002863

PATIENT
  Age: 67 Year
  Sex: Female
  Weight: 63.6 kg

DRUGS (12)
  1. ACTONEL [Suspect]
     Dosage: 30 MG ONCE WEEKLY, ORAL ; 35 MG ONCE WEEKLY, ORAL
     Route: 048
     Dates: start: 20010604, end: 20020730
  2. ACTONEL [Suspect]
     Dosage: 30 MG ONCE WEEKLY, ORAL ; 35 MG ONCE WEEKLY, ORAL
     Route: 048
     Dates: start: 20020730, end: 20070615
  3. ACTONEL [Suspect]
     Indication: OSTEOPOROSIS
     Dosage: 35 MG ONCE WEEKLY, ORAL
     Route: 048
     Dates: start: 20020730, end: 20020919
  4. ACTONEL [Suspect]
     Indication: OSTEOPOROSIS
     Dosage: 35 MG ONCE WEEKLY, ORAL
     Route: 048
     Dates: start: 20040122, end: 20070615
  5. LANSOPRAZOLE [Concomitant]
  6. NORTRIPTYLINE HCL [Concomitant]
  7. DICLOFENAC SODIUM [Concomitant]
  8. NAPROXEN [Concomitant]
  9. PAXIL CR [Concomitant]
  10. PREMARIN [Concomitant]
  11. DAROVET /00220901/ (DEXTROPROPOXYPHENE HYDROCHLORIDE, PARACETAMOL) [Concomitant]
  12. CELEXA [Concomitant]

REACTIONS (19)
  - BONE DISORDER [None]
  - CHEST PAIN [None]
  - DYSPHAGIA [None]
  - GASTRITIS [None]
  - GINGIVAL ULCERATION [None]
  - HAEMATEMESIS [None]
  - HIATUS HERNIA [None]
  - HOT FLUSH [None]
  - JAW DISORDER [None]
  - MALAISE [None]
  - ODYNOPHAGIA [None]
  - OESOPHAGEAL DISORDER [None]
  - OESOPHAGEAL ULCER [None]
  - OSTEONECROSIS [None]
  - PAIN [None]
  - PAIN IN JAW [None]
  - PRESYNCOPE [None]
  - PRIMARY SEQUESTRUM [None]
  - TOOTH FRACTURE [None]
